FAERS Safety Report 11567269 (Version 1)
Quarter: 2015Q3

REPORT INFORMATION
  Report Type: Spontaneous
  Country: US (occurrence: US)
  Receive Date: 20150916
  Receipt Date: 20150916
  Transmission Date: 20151125
  Serious: No
  Sender: FDA-Public Use
  Company Number: US-ELI_LILLY_AND_COMPANY-US200907003179

PATIENT
  Age: 58 Year
  Sex: Female

DRUGS (5)
  1. LIPITOR [Concomitant]
     Active Substance: ATORVASTATIN CALCIUM
  2. ARMOUR THYROID [Concomitant]
     Active Substance: THYROID, PORCINE\THYROID, UNSPECIFIED
  3. FORTEO [Suspect]
     Active Substance: TERIPARATIDE
     Dates: start: 200905
  4. SYMLIN [Concomitant]
     Active Substance: PRAMLINTIDE ACETATE
  5. INSULIN [Concomitant]
     Active Substance: INSULIN NOS
     Route: 058

REACTIONS (2)
  - Injection site bruising [Unknown]
  - Vitamin D decreased [Unknown]

NARRATIVE: CASE EVENT DATE: 20090702
